FAERS Safety Report 17192150 (Version 2)
Quarter: 2019Q4

REPORT INFORMATION
  Report Type: Spontaneous
  Country: US (occurrence: US)
  Receive Date: 20191223
  Receipt Date: 20191227
  Transmission Date: 20200122
  Serious: Yes (Hospitalization, Other)
  Sender: FDA-Public Use
  Company Number: US-009507513-1912USA008298

PATIENT
  Age: 33 Year
  Sex: Female

DRUGS (3)
  1. ITRACONAZOLE. [Suspect]
     Active Substance: ITRACONAZOLE
     Indication: HISTOPLASMOSIS DISSEMINATED
     Dosage: UNK
     Route: 048
     Dates: start: 20191029
  2. RENFLEXIS [Suspect]
     Active Substance: INFLIXIMAB-ABDA
     Indication: COLITIS ULCERATIVE
     Dosage: 10 MILLIGRAM/KILOGRAM, EVERY 6 WEEKS
     Dates: start: 201807, end: 201910
  3. DIPROLENE [Suspect]
     Active Substance: BETAMETHASONE DIPROPIONATE
     Dosage: X2 FOR GESTATIONAL AGE
     Dates: start: 2019

REACTIONS (13)
  - Immunosuppression [Unknown]
  - Human rhinovirus test positive [Unknown]
  - Anaemia of pregnancy [Recovered/Resolved]
  - Histoplasmosis disseminated [Recovering/Resolving]
  - Rash [Unknown]
  - Maternal exposure during pregnancy [Recovered/Resolved]
  - HELLP syndrome [Recovering/Resolving]
  - Premature delivery [Recovered/Resolved]
  - Splenic abscess [Unknown]
  - Tachycardia foetal [Unknown]
  - Enterovirus test positive [Unknown]
  - Appendicitis [Unknown]
  - Nasopharyngitis [Unknown]

NARRATIVE: CASE EVENT DATE: 2019
